FAERS Safety Report 10015301 (Version 1)
Quarter: 2014Q1

REPORT INFORMATION
  Report Type: Spontaneous
  Country: US (occurrence: US)
  Receive Date: 20140317
  Receipt Date: 20140317
  Transmission Date: 20141002
  Serious: No
  Sender: FDA-Public Use
  Company Number: US-PFIZER INC-2014073799

PATIENT
  Sex: 0

DRUGS (1)
  1. CHANTIX [Suspect]
     Indication: SMOKING CESSATION THERAPY
     Dosage: UNK

REACTIONS (5)
  - Nightmare [Unknown]
  - Abdominal discomfort [Unknown]
  - Constipation [Unknown]
  - Abdominal distension [Unknown]
  - Irritability [Unknown]
